FAERS Safety Report 14854929 (Version 1)
Quarter: 2018Q2

REPORT INFORMATION
  Report Type: Spontaneous
  Country: GB (occurrence: GB)
  Receive Date: 20180507
  Receipt Date: 20180507
  Transmission Date: 20180711
  Serious: Yes (Hospitalization)
  Sender: FDA-Public Use
  Company Number: PHHY2018GB003170

PATIENT
  Sex: Female

DRUGS (1)
  1. TEMAZEPAM. [Suspect]
     Active Substance: TEMAZEPAM
     Indication: INSOMNIA
     Dosage: 10 MG, UNK
     Route: 048

REACTIONS (1)
  - Dysphagia [Not Recovered/Not Resolved]
